FAERS Safety Report 26022181 (Version 1)
Quarter: 2025Q4

REPORT INFORMATION
  Report Type: Spontaneous
  Country: US (occurrence: US)
  Receive Date: 20251110
  Receipt Date: 20251110
  Transmission Date: 20260118
  Serious: No
  Sender: ABBVIE
  Company Number: US-ABBVIE-6535199

PATIENT
  Age: 72 Year
  Sex: Male
  Weight: 86.182 kg

DRUGS (19)
  1. DUOPA [Suspect]
     Active Substance: CARBIDOPA\LEVODOPA
     Indication: Parkinson^s disease
     Dosage: FIRST ADMIN DATE: 2022 OR 2023
     Route: 050
     Dates: end: 20251029
  2. DUOPA [Suspect]
     Active Substance: CARBIDOPA\LEVODOPA
  3. ATORVASTATIN [Concomitant]
     Active Substance: ATORVASTATIN
     Indication: Product used for unknown indication
  4. HYDROCODONE [Concomitant]
     Active Substance: HYDROCODONE
     Indication: Pain
  5. PRAZOSIN [Concomitant]
     Active Substance: PRAZOSIN
     Indication: Prostatic disorder
  6. DROXIDOPA [Concomitant]
     Active Substance: DROXIDOPA
     Indication: Hypotension
  7. DICLOFENAC [Concomitant]
     Active Substance: DICLOFENAC
     Indication: Arthralgia
  8. IBUPROFEN [Concomitant]
     Active Substance: IBUPROFEN
     Indication: Pain
  9. CLOBETASOL [Concomitant]
     Active Substance: CLOBETASOL
     Indication: Skin disorder
  10. SERTRALINE [Concomitant]
     Active Substance: SERTRALINE HYDROCHLORIDE
     Indication: Depression
  11. Midodrin [Concomitant]
     Indication: Hypotension
  12. VITAMIN B12 [Concomitant]
     Active Substance: CYANOCOBALAMIN
     Indication: Vitamin supplementation
  13. MAGNESIUM [Concomitant]
     Active Substance: MAGNESIUM
     Indication: Mineral supplementation
  14. ASPIRIN [Concomitant]
     Active Substance: ASPIRIN
     Indication: Cardiac failure congestive
  15. GABAPENTIN [Concomitant]
     Active Substance: GABAPENTIN
     Indication: Pain
  16. METAXALONE [Concomitant]
     Active Substance: METAXALONE
     Indication: Pain
  17. OMEPRAZOLE [Concomitant]
     Active Substance: OMEPRAZOLE
     Indication: Dyspepsia
  18. TYLENOL [Concomitant]
     Active Substance: ACETAMINOPHEN
     Indication: Pain
  19. BOTOX [Concomitant]
     Active Substance: ONABOTULINUMTOXINA
     Indication: Musculoskeletal stiffness

REACTIONS (7)
  - Movement disorder [Unknown]
  - Poor quality sleep [Unknown]
  - Dyskinesia [Not Recovered/Not Resolved]
  - Dental caries [Recovering/Resolving]
  - Tooth injury [Recovering/Resolving]
  - On and off phenomenon [Unknown]
  - Thinking abnormal [Unknown]

NARRATIVE: CASE EVENT DATE: 20240101
